FAERS Safety Report 4391194-5 (Version None)
Quarter: 2004Q2

REPORT INFORMATION
  Report Type: 
  Country: None (occurrence: None)
  Receive Date: 20040621
  Receipt Date: 20031125
  Transmission Date: 20050107
  Serious: Yes (Death)
  Sender: FDA-Public Use
  Company Number: USA-2003-0011069

PATIENT
  Age: 41 Year
  Sex: Female
  Weight: 70.7 kg

DRUGS (12)
  1. OXYCODONE HCL [Suspect]
  2. ETHANOL (EHTANOL) [Suspect]
  3. BUTALBITAL [Suspect]
  4. SECOBARBITAL (SECOBRABITAL) [Suspect]
  5. ACETAMINOPHEN [Suspect]
  6. METHADONE HCL [Suspect]
  7. AMITRIPTYLINE HCL [Suspect]
  8. NORTRIPTYLINE HCL [Suspect]
  9. CARISOPRODOL [Suspect]
  10. MEPROBAMATE [Suspect]
  11. DIHYDROCODEINE (DIHYDROCODEINE) [Suspect]
  12. CAFFEINE (CAFFEINE) [Suspect]

REACTIONS (1)
  - MULTIPLE DRUG OVERDOSE [None]
